FAERS Safety Report 4995581-3 (Version None)
Quarter: 2006Q2

REPORT INFORMATION
  Report Type: 
  Country: None (occurrence: None)
  Receive Date: 20060508
  Receipt Date: 20060426
  Transmission Date: 20061013
  Serious: Yes (Hospitalization)
  Sender: FDA-Public Use
  Company Number: FR-ROCHE-446060

PATIENT
  Age: 14 Year
  Sex: Female

DRUGS (4)
  1. RIVOTRIL [Suspect]
     Indication: AGITATION
     Route: 030
     Dates: start: 20060317
  2. LOXAPAC [Suspect]
     Indication: DRUG USE FOR UNKNOWN INDICATION
     Route: 030
     Dates: start: 20060317
  3. SPASMINE [Concomitant]
  4. LEXOMIL [Concomitant]

REACTIONS (1)
  - DYSKINESIA [None]
